FAERS Safety Report 19251683 (Version 1)
Quarter: 2021Q2

REPORT INFORMATION
  Report Type: Spontaneous
  Country: US (occurrence: US)
  Receive Date: 20210513
  Receipt Date: 20210513
  Transmission Date: 20210717
  Serious: No
  Sender: FDA-Public Use
  Company Number: US-EMD SERONO-7021125

PATIENT
  Age: 68 Year
  Sex: Female

DRUGS (1)
  1. REBIF [Suspect]
     Active Substance: INTERFERON BETA-1A
     Indication: PRODUCT USED FOR UNKNOWN INDICATION
     Dosage: MANUAL
     Route: 058
     Dates: start: 20100513

REACTIONS (8)
  - Pyrexia [Unknown]
  - Dysstasia [Unknown]
  - Fall [Unknown]
  - Chills [Unknown]
  - Upper limb fracture [Unknown]
  - Pain [Unknown]
  - Injection site erythema [Unknown]
  - Tendonitis [Unknown]

NARRATIVE: CASE EVENT DATE: 2010
